FAERS Safety Report 6953690-3 (Version None)
Quarter: 2010Q3

REPORT INFORMATION
  Report Type: 
  Country: None (occurrence: None)
  Receive Date: 20100829
  Receipt Date: 20100622
  Transmission Date: 20110219
  Serious: No
  Sender: FDA-Public Use
  Company Number: US-ABBOTT-10P-163-0652898-00

PATIENT
  Sex: Male
  Weight: 100.79 kg

DRUGS (4)
  1. NIASPAN [Suspect]
     Indication: HIGH DENSITY LIPOPROTEIN DECREASED
     Dosage: DAILY AT BED TIME
     Dates: start: 20100614
  2. NAPROXEN [Concomitant]
     Indication: PRODUCT USED FOR UNKNOWN INDICATION
  3. VITAMIN COMPLEX (FOR MEN OVER 40) - OTC [Concomitant]
     Indication: PRODUCT USED FOR UNKNOWN INDICATION
  4. OTC SUPPLEMENT FOR JOINTS [Concomitant]
     Indication: PRODUCT USED FOR UNKNOWN INDICATION

REACTIONS (3)
  - ABDOMINAL DISCOMFORT [None]
  - FLUSHING [None]
  - PARAESTHESIA [None]
